FAERS Safety Report 7690870-6 (Version None)
Quarter: 2011Q3

REPORT INFORMATION
  Report Type: 
  Country: None (occurrence: None)
  Receive Date: 20110818
  Receipt Date: 20110809
  Transmission Date: 20111222
  Serious: Yes (Other)
  Sender: FDA-Public Use
  Company Number: GXKR2010GB06304

PATIENT
  Age: 53 Year
  Sex: Female

DRUGS (5)
  1. ESTRADIOL [Suspect]
  2. BUPIVACAINE HCL [Suspect]
     Indication: SPINAL ANAESTHESIA
     Dosage: 2.5 ML, UNK
  3. DIACETYLMORPHINE [Suspect]
     Indication: SPINAL ANAESTHESIA
     Dosage: 300 UG, UNK
  4. DEXAMETHASONE [Suspect]
  5. BENDROFLUAZIDE [Concomitant]

REACTIONS (1)
  - MYOCLONUS [None]
